FAERS Safety Report 19227829 (Version 2)
Quarter: 2021Q3

REPORT INFORMATION
  Report Type: Report from Study
  Country: US (occurrence: US)
  Receive Date: 20210506
  Receipt Date: 20210920
  Transmission Date: 20211014
  Serious: Yes (Other)
  Sender: FDA-Public Use
  Company Number: NVSC2021US096250

PATIENT
  Sex: Male

DRUGS (2)
  1. ENTRESTO [Suspect]
     Active Substance: SACUBITRIL\VALSARTAN
     Indication: PRODUCT USED FOR UNKNOWN INDICATION
     Dosage: 24/26MG, BID
     Route: 048
  2. FLOMAX [Concomitant]
     Active Substance: TAMSULOSIN HYDROCHLORIDE
     Indication: PRODUCT USED FOR UNKNOWN INDICATION
     Dosage: 1 DF, QD (ONE PILL A DAY)
     Route: 065

REACTIONS (6)
  - Pollakiuria [Unknown]
  - Atrial fibrillation [Unknown]
  - Sleep apnoea syndrome [Unknown]
  - Dizziness [Recovering/Resolving]
  - Sleep disorder [Unknown]
  - Coronary artery occlusion [Unknown]
